FAERS Safety Report 8956193 (Version 2)
Quarter: 2013Q1

REPORT INFORMATION
  Report Type: Spontaneous
  Country: CA (occurrence: CA)
  Receive Date: 20121210
  Receipt Date: 20130204
  Transmission Date: 20140127
  Serious: Yes (Other)
  Sender: FDA-Public Use
  Company Number: CA-ELI_LILLY_AND_COMPANY-CA201211008824

PATIENT
  Age: 71 Year
  Sex: Female

DRUGS (16)
  1. FORTEO [Suspect]
     Indication: OSTEOPOROSIS
     Dosage: 20 UG, QD
     Route: 058
     Dates: start: 20111021
  2. CALCIUM [Concomitant]
     Dosage: UNK, UNKNOWN
     Route: 065
  3. VITAMIN D NOS [Concomitant]
     Dosage: UNK, UNKNOWN
     Route: 065
  4. IRON [Concomitant]
     Dosage: UNK, UNKNOWN
     Route: 065
  5. EFFEXOR [Concomitant]
     Dosage: UNK, UNKNOWN
     Route: 065
  6. CRESTOR [Concomitant]
     Dosage: UNK, UNKNOWN
     Route: 065
  7. SERAX [Concomitant]
     Dosage: UNK, UNKNOWN
     Route: 065
  8. ELAVIL [Concomitant]
     Dosage: UNK, UNKNOWN
     Route: 065
  9. METHOTREXATE [Concomitant]
     Dosage: UNK, UNKNOWN
     Route: 065
  10. VITAMIN B12 [Concomitant]
     Dosage: UNK, UNKNOWN
     Route: 065
  11. BISOPROLOL [Concomitant]
     Dosage: UNK, UNKNOWN
     Route: 065
  12. ASA [Concomitant]
     Dosage: UNK, UNKNOWN
     Route: 065
  13. LEUCOVORIN [Concomitant]
     Dosage: UNK, UNKNOWN
     Route: 065
  14. PREDNISONE [Concomitant]
     Dosage: UNK, UNKNOWN
     Route: 065
  15. CELEBREX [Concomitant]
     Dosage: UNK, UNKNOWN
     Route: 065
  16. PANTOLOC                           /01263204/ [Concomitant]
     Dosage: UNK, UNKNOWN
     Route: 065

REACTIONS (6)
  - Rheumatoid arthritis [Not Recovered/Not Resolved]
  - Motor dysfunction [Not Recovered/Not Resolved]
  - Joint swelling [Not Recovered/Not Resolved]
  - Herpes zoster [Not Recovered/Not Resolved]
  - Depression [Not Recovered/Not Resolved]
  - Asthenia [Not Recovered/Not Resolved]
